FAERS Safety Report 18895729 (Version 3)
Quarter: 2021Q1

REPORT INFORMATION
  Report Type: Spontaneous
  Country: PL (occurrence: PL)
  Receive Date: 20210216
  Receipt Date: 20210312
  Transmission Date: 20210420
  Serious: Yes (Other)
  Sender: FDA-Public Use
  Company Number: PL-AUROBINDO-AUR-APL-2021-005838

PATIENT
  Age: 53 Year
  Sex: Male

DRUGS (4)
  1. PREGABALIN. [Suspect]
     Active Substance: PREGABALIN
     Indication: ANXIETY
     Dosage: 300 MILLIGRAM, ONCE A DAY
     Route: 065
     Dates: start: 2020
  2. PREGABALIN. [Suspect]
     Active Substance: PREGABALIN
     Indication: REACTIVE PSYCHOSIS
  3. ESCITALOPRAM [Suspect]
     Active Substance: ESCITALOPRAM OXALATE
     Indication: ANXIETY
     Dosage: 20 MILLIGRAM, ONCE A DAY
     Route: 065
     Dates: start: 2020
  4. ESCITALOPRAM [Suspect]
     Active Substance: ESCITALOPRAM OXALATE
     Indication: REACTIVE PSYCHOSIS
     Dosage: 10 MILLIGRAM
     Route: 065
     Dates: start: 202003

REACTIONS (4)
  - Libido increased [Unknown]
  - Reactive psychosis [Recovered/Resolved]
  - Drug ineffective [Unknown]
  - Therapeutic product effect incomplete [Recovered/Resolved]

NARRATIVE: CASE EVENT DATE: 2020
